FAERS Safety Report 9631291 (Version 2)
Quarter: 2013Q4

REPORT INFORMATION
  Report Type: Spontaneous
  Country: US (occurrence: US)
  Receive Date: 20131018
  Receipt Date: 20131018
  Transmission Date: 20140711
  Serious: Yes (Other)
  Sender: FDA-Public Use
  Company Number: US-JNJFOC-20130707573

PATIENT
  Age: 83 Year
  Sex: Female
  Weight: 68.04 kg

DRUGS (7)
  1. XARELTO [Suspect]
     Indication: CEREBROVASCULAR ACCIDENT PROPHYLAXIS
     Dosage: STRENGTH: 20 MG WITH EVENING MEAL
     Route: 048
     Dates: start: 20130328
  2. XARELTO [Suspect]
     Indication: ATRIAL FIBRILLATION
     Dosage: STRENGTH: 20 MG WITH EVENING MEAL
     Route: 048
     Dates: start: 20130328
  3. DIOVAN [Concomitant]
     Indication: HYPERTENSION
     Route: 065
     Dates: start: 2013
  4. DIOVAN [Concomitant]
     Indication: ATRIAL FIBRILLATION
     Route: 065
     Dates: start: 2013
  5. TRAVATAN [Concomitant]
     Indication: ABNORMAL SENSATION IN EYE
     Route: 065
     Dates: start: 1998
  6. CENTRUM SILVER [Concomitant]
     Route: 065
  7. VITAMIN D [Concomitant]
     Route: 065

REACTIONS (7)
  - Haemorrhage [Recovered/Resolved]
  - Dizziness [Not Recovered/Not Resolved]
  - Headache [Not Recovered/Not Resolved]
  - Tremor [Not Recovered/Not Resolved]
  - Nausea [Not Recovered/Not Resolved]
  - Laceration [Recovered/Resolved]
  - Asthenia [Not Recovered/Not Resolved]
